FAERS Safety Report 20075496 (Version 4)
Quarter: 2022Q2

REPORT INFORMATION
  Report Type: Spontaneous
  Country: JP (occurrence: JP)
  Receive Date: 20211116
  Receipt Date: 20220502
  Transmission Date: 20220721
  Serious: Yes (Hospitalization, Other)
  Sender: FDA-Public Use
  Company Number: JP-BRISTOL-MYERS SQUIBB COMPANY-BMS-2021-122160

PATIENT
  Age: 72 Year
  Sex: Male
  Weight: 65.55 kg

DRUGS (4)
  1. OPDIVO [Suspect]
     Active Substance: NIVOLUMAB
     Indication: Metastatic renal cell carcinoma
     Dosage: 240 MILLIGRAM
     Route: 041
     Dates: start: 20210727, end: 20210907
  2. YERVOY [Suspect]
     Active Substance: IPILIMUMAB
     Indication: Metastatic renal cell carcinoma
     Dosage: UNK
     Route: 041
     Dates: end: 20210907
  3. ASPIRIN [Concomitant]
     Active Substance: ASPIRIN
     Indication: Product used for unknown indication
     Dosage: UNK
     Route: 065
  4. NEXIUM [Concomitant]
     Active Substance: ESOMEPRAZOLE MAGNESIUM
     Indication: Product used for unknown indication
     Dosage: UNK
     Route: 065

REACTIONS (3)
  - Shock [Recovering/Resolving]
  - Pruritus [Recovering/Resolving]
  - Blood pressure increased [Recovered/Resolved]

NARRATIVE: CASE EVENT DATE: 20210907
